FAERS Safety Report 5958039-0 (Version None)
Quarter: 2008Q4

REPORT INFORMATION
  Report Type: 
  Country: None (occurrence: None)
  Receive Date: 20081119
  Receipt Date: 20081110
  Transmission Date: 20090506
  Serious: Yes (Other)
  Sender: FDA-Public Use
  Company Number: A0683995A

PATIENT
  Age: 43 Year
  Sex: Male
  Weight: 93.2 kg

DRUGS (14)
  1. AVANDAMET [Suspect]
     Indication: TYPE 2 DIABETES MELLITUS
     Route: 048
     Dates: start: 20010101, end: 20061101
  2. AVANDIA [Suspect]
     Dosage: 2MG TWICE PER DAY
     Route: 048
  3. LEVAQUIN [Concomitant]
  4. FLOVENT [Concomitant]
  5. AMARYL [Concomitant]
  6. ASPIRIN [Concomitant]
  7. CRESTOR [Concomitant]
  8. TRICOR [Concomitant]
  9. ZETIA [Concomitant]
  10. METFORMIN HCL [Concomitant]
  11. LOPRESSOR [Concomitant]
  12. TYLENOL (CAPLET) [Concomitant]
  13. NEXIUM [Concomitant]
  14. ATACAND HCT [Concomitant]

REACTIONS (4)
  - ANXIETY [None]
  - HEART INJURY [None]
  - MYOCARDIAL INFARCTION [None]
  - PAIN [None]
